FAERS Safety Report 7831770-8 (Version None)
Quarter: 2011Q4

REPORT INFORMATION
  Report Type: 
  Country: None (occurrence: None)
  Receive Date: 20111021
  Receipt Date: 20111013
  Transmission Date: 20120403
  Serious: Yes (Congenital Anomaly)
  Sender: FDA-Public Use
  Company Number: PHHY2011GB90499

PATIENT

DRUGS (5)
  1. QVAR 40 [Concomitant]
     Indication: ASTHMA
     Dosage: 2 DF, BID
     Route: 064
     Dates: start: 20101206
  2. FLUOXETINE [Suspect]
     Dosage: UNK
     Route: 064
  3. FERROUS FUMARATE [Concomitant]
     Indication: ANAEMIA
     Dosage: 210 MG, BID
     Route: 064
  4. LEVOTHYROXINE SODIUM [Concomitant]
     Indication: HYPOTHYROIDISM
     Dosage: 75 UG, QD
     Route: 064
     Dates: start: 20100101
  5. SULFASALAZINE [Concomitant]
     Indication: ARTHROPATHY
     Dosage: 1 G, BID
     Route: 064
     Dates: start: 20100113

REACTIONS (2)
  - CLEFT PALATE [None]
  - MATERNAL EXPOSURE DURING PREGNANCY [None]
